FAERS Safety Report 17431053 (Version 1)
Quarter: 2020Q1

REPORT INFORMATION
  Report Type: Report from Study
  Country: US (occurrence: US)
  Receive Date: 20200218
  Receipt Date: 20200218
  Transmission Date: 20200409
  Serious: Yes (Other)
  Sender: FDA-Public Use
  Company Number: US-UNITED THERAPEUTICS-UNT-2019-021454

PATIENT
  Sex: Female
  Weight: 79.82 kg

DRUGS (6)
  1. TREPROSTINIL SODIUM (INHALED) [Suspect]
     Active Substance: TREPROSTINIL SODIUM
     Dosage: 24 ?G, QID
     Dates: start: 2019
  2. TREPROSTINIL SODIUM (INHALED) [Suspect]
     Active Substance: TREPROSTINIL SODIUM
     Dosage: 12 ?G, QID
     Dates: start: 2019
  3. TREPROSTINIL SODIUM (INHALED) [Suspect]
     Active Substance: TREPROSTINIL SODIUM
     Indication: PULMONARY ARTERIAL HYPERTENSION
     Dosage: 18-54 ?G, QID
     Dates: start: 20191114
  4. TREPROSTINIL SODIUM (INHALED) [Suspect]
     Active Substance: TREPROSTINIL SODIUM
     Dosage: UNK
  5. TREPROSTINIL SODIUM (INHALED) [Suspect]
     Active Substance: TREPROSTINIL SODIUM
     Dosage: 30 ?G, QID
  6. TREPROSTINIL SODIUM (INHALED) [Suspect]
     Active Substance: TREPROSTINIL SODIUM
     Dosage: UNK
     Dates: end: 20200211

REACTIONS (10)
  - Drug hypersensitivity [Unknown]
  - Throat irritation [Unknown]
  - Glossitis [Unknown]
  - Retching [Unknown]
  - Dyspnoea [Not Recovered/Not Resolved]
  - Feeling abnormal [Unknown]
  - Cough [Unknown]
  - Dizziness [Unknown]
  - Anxiety [Unknown]
  - Swollen tongue [Unknown]

NARRATIVE: CASE EVENT DATE: 2019
